FAERS Safety Report 23513313 (Version 1)
Quarter: 2024Q1

REPORT INFORMATION
  Report Type: Spontaneous
  Country: US (occurrence: None)
  Receive Date: 20240210
  Receipt Date: 20240210
  Transmission Date: 20240410
  Serious: Yes (Disabling)
  Sender: FDA-Public Use
  Company Number: None

PATIENT
  Age: 50 Year
  Sex: Female
  Weight: 65.25 kg

DRUGS (4)
  1. TRELEGY ELLIPTA [Suspect]
     Active Substance: FLUTICASONE FUROATE\UMECLIDINIUM BROMIDE\VILANTEROL TRIFENATATE
     Dates: start: 20210908, end: 20240110
  2. ALBUTEROL [Concomitant]
     Active Substance: ALBUTEROL
  3. RIZATRIPTAN [Concomitant]
     Active Substance: RIZATRIPTAN
  4. KETOTIFEN FUMARATE [Concomitant]
     Active Substance: KETOTIFEN FUMARATE

REACTIONS (5)
  - Asthma [None]
  - Eye pruritus [None]
  - Ear pruritus [None]
  - Sneezing [None]
  - Product formulation issue [None]

NARRATIVE: CASE EVENT DATE: 20231216
